FAERS Safety Report 8882885 (Version 1)
Quarter: 2012Q4

REPORT INFORMATION
  Report Type: 
  Country: US (occurrence: US)
  Receive Date: 20121102
  Receipt Date: 20121102
  Transmission Date: 20130627
  Serious: No
  Sender: FDA-Public Use
  Company Number: US-ASTRAZENECA-2011SE70671

PATIENT
  Age: 72 Year
  Sex: Female
  Weight: 86.2 kg

DRUGS (12)
  1. CRESTOR [Suspect]
     Indication: BLOOD CHOLESTEROL ABNORMAL
     Route: 048
     Dates: start: 2010
  2. CRESTOR [Suspect]
     Indication: BLOOD TRIGLYCERIDES ABNORMAL
     Route: 048
     Dates: start: 2010
  3. MOBIC [Concomitant]
  4. TYLENOL [Concomitant]
  5. LIFIBID [Concomitant]
  6. METOPROLOL LOWPRESA [Concomitant]
     Indication: BLOOD PRESSURE ABNORMAL
  7. MELOXICAN [Concomitant]
     Indication: ARTHRITIS
  8. VITAMIN D [Concomitant]
  9. MULTIVITAMINS [Concomitant]
  10. GLUCOSAMINE [Concomitant]
  11. FISHOIL [Concomitant]
  12. VITAMIN C [Concomitant]

REACTIONS (1)
  - Dry mouth [Unknown]
